FAERS Safety Report 7809892-7 (Version None)
Quarter: 2011Q4

REPORT INFORMATION
  Report Type: 
  Country: None (occurrence: None)
  Receive Date: 20111012
  Receipt Date: 20111003
  Transmission Date: 20120403
  Serious: Yes (Hospitalization)
  Sender: FDA-Public Use
  Company Number: PHHY2011SE88253

PATIENT
  Age: 68 Year
  Sex: Female

DRUGS (9)
  1. OMEPRAZOLE [Concomitant]
  2. ENOXAPARIN SODIUM [Concomitant]
  3. FUROSEMIDE [Concomitant]
  4. OXASCAND [Concomitant]
  5. KETOGAN NOVUM [Concomitant]
  6. RIFAMPIN [Suspect]
     Dosage: 600 MG, UNK
     Route: 048
     Dates: start: 20110615
  7. MOVIPREP [Concomitant]
  8. BETAPRED [Concomitant]
  9. ZOFRAN [Concomitant]

REACTIONS (6)
  - PERSONALITY CHANGE [None]
  - GLIOBLASTOMA MULTIFORME [None]
  - CONFUSIONAL STATE [None]
  - APHASIA [None]
  - HEPATIC ENZYME INCREASED [None]
  - BLOOD BILIRUBIN INCREASED [None]
